FAERS Safety Report 11910575 (Version 1)
Quarter: 2016Q1

REPORT INFORMATION
  Report Type: Spontaneous
  Country: US (occurrence: None)
  Receive Date: 20160111
  Receipt Date: 20160111
  Transmission Date: 20160526
  Serious: Yes (Other)
  Sender: FDA-Public Use
  Company Number: None

PATIENT
  Age: 43 Year

DRUGS (1)
  1. CYMBALTA [Suspect]
     Active Substance: DULOXETINE HYDROCHLORIDE

REACTIONS (6)
  - Feeling abnormal [None]
  - Nausea [None]
  - Dizziness [None]
  - Fatigue [None]
  - Paraesthesia [None]
  - Insomnia [None]

NARRATIVE: CASE EVENT DATE: 20151221
